FAERS Safety Report 9108254 (Version 3)
Quarter: 2015Q4

REPORT INFORMATION
  Report Type: Report from Study
  Country: JP (occurrence: JP)
  Receive Date: 20130222
  Receipt Date: 20151116
  Transmission Date: 20160305
  Serious: Yes (Hospitalization, Disabling, Other)
  Sender: FDA-Public Use
  Company Number: JP-009507513-1302JPN007488

PATIENT
  Age: 71 Year
  Sex: Female

DRUGS (22)
  1. AROGLYCEM [Suspect]
     Active Substance: DIAZOXIDE
     Dosage: 50 MG, BID
     Route: 048
     Dates: start: 20110218, end: 20110218
  2. AROGLYCEM [Suspect]
     Active Substance: DIAZOXIDE
     Dosage: 25 MG, TID
     Route: 048
     Dates: start: 20110816, end: 20130206
  3. SELBEX [Concomitant]
     Active Substance: TEPRENONE
     Indication: GASTRITIS
     Dosage: 150-100 MG, QD
     Route: 048
     Dates: start: 20110216
  4. SELBEX [Concomitant]
     Active Substance: TEPRENONE
     Dosage: 300 MG, QD
     Route: 048
     Dates: start: 20110810
  5. WYPAX [Concomitant]
     Active Substance: LORAZEPAM
     Indication: ANXIETY DISORDER
     Dosage: 0.5 MG, QD, DIVIDED DOSE FREQUENCY UNKNOWN, FORMULATION: POR
     Route: 048
     Dates: start: 20040220
  6. GEMZAR [Concomitant]
     Active Substance: GEMCITABINE HYDROCHLORIDE
     Indication: NEUTROPHIL COUNT DECREASED
  7. MUCOSTA [Concomitant]
     Active Substance: REBAMIPIDE
     Indication: GASTRITIS
  8. HACHIAZULE GARGLE [Concomitant]
     Indication: STOMATITIS
     Dosage: ABOUT 4 PACKS AS NEEDED, FORMULATION GRA
     Route: 049
     Dates: start: 20080214
  9. AROGLYCEM [Suspect]
     Active Substance: DIAZOXIDE
     Indication: HYPOGLYCAEMIA
     Dosage: 50 MG, TID
     Route: 048
     Dates: start: 20110216, end: 20110217
  10. AROGLYCEM [Suspect]
     Active Substance: DIAZOXIDE
     Dosage: 25 MG, TID
     Route: 048
     Dates: start: 20110502, end: 20110504
  11. SELBEX [Concomitant]
     Active Substance: TEPRENONE
     Indication: GASTROOESOPHAGEAL REFLUX DISEASE
     Dosage: 150 MG, AS NEEDED THAN BEFORE AND OCCASIONALU USED, FORMULATION POR
     Route: 048
     Dates: start: 20071023, end: 20110215
  12. INTEBAN [Concomitant]
     Active Substance: INDOMETHACIN
     Dosage: PROPER DOSE
     Route: 061
     Dates: start: 2006, end: 20110215
  13. AROGLYCEM [Suspect]
     Active Substance: DIAZOXIDE
     Dosage: 25 MG, QD
     Route: 048
     Dates: start: 20110228, end: 20110311
  14. AROGLYCEM [Suspect]
     Active Substance: DIAZOXIDE
     Dosage: 25 MG, BID
     Route: 048
     Dates: start: 20110312, end: 20110413
  15. AROGLYCEM [Suspect]
     Active Substance: DIAZOXIDE
     Dosage: 25 MG, BID
     Route: 048
     Dates: start: 20110505, end: 20110815
  16. GEMZAR [Concomitant]
     Active Substance: GEMCITABINE HYDROCHLORIDE
     Indication: METASTASES TO LIVER
     Dosage: 400 MG, QD, DIVIDED DOSE FREQUENCY UNKNOWN
     Route: 042
     Dates: start: 20070409, end: 20110222
  17. LOXONIN [Concomitant]
     Active Substance: LOXOPROFEN SODIUM
     Indication: PAIN
     Dosage: 60-180 MG, QD
     Route: 048
     Dates: start: 20060511, end: 20110215
  18. AROGLYCEM [Suspect]
     Active Substance: DIAZOXIDE
     Dosage: 25 MG, QID
     Route: 048
     Dates: start: 20130207, end: 20130613
  19. MUCOSTA [Concomitant]
     Active Substance: REBAMIPIDE
     Indication: GASTROOESOPHAGEAL REFLUX DISEASE
     Dosage: 300 MG, QD, DIVIDED DOSE FREQUENCY UNKNOWN, FORMULATION POR
     Route: 048
     Dates: start: 20060729, end: 20111126
  20. LOXONIN [Concomitant]
     Active Substance: LOXOPROFEN SODIUM
     Dosage: 2- 3 TABLETS, QD
     Route: 048
     Dates: end: 20120206
  21. AROGLYCEM [Suspect]
     Active Substance: DIAZOXIDE
     Dosage: 25 MG, TID
     Route: 048
     Dates: start: 20110414, end: 20110430
  22. NOZLEN [Concomitant]
     Indication: STOMATITIS
     Dosage: UNK
     Route: 049
     Dates: start: 20110216

REACTIONS (19)
  - Oedema [Not Recovered/Not Resolved]
  - Hyperglycaemia [Recovering/Resolving]
  - Oedema [Recovered/Resolved]
  - Abdominal pain upper [Recovering/Resolving]
  - Hepatic enzyme increased [Not Recovered/Not Resolved]
  - Dyspepsia [Recovered/Resolved]
  - Hyperglycaemia [Recovering/Resolving]
  - Nausea [Recovered/Resolved]
  - Anxiety disorder [Recovering/Resolving]
  - Constipation [Recovered/Resolved]
  - Cancer pain [Recovering/Resolving]
  - Pain [Not Recovered/Not Resolved]
  - Gastrooesophageal reflux disease [Recovering/Resolving]
  - Pruritus [Recovered/Resolved]
  - Decreased appetite [Recovered/Resolved]
  - Haemorrhage subcutaneous [Recovering/Resolving]
  - Oedema [Recovering/Resolving]
  - Pollakiuria [Recovered/Resolved]
  - Blood zinc decreased [Not Recovered/Not Resolved]

NARRATIVE: CASE EVENT DATE: 2011
